FAERS Safety Report 8197253-3 (Version None)
Quarter: 2012Q1

REPORT INFORMATION
  Report Type: 
  Country: None (occurrence: None)
  Receive Date: 20120309
  Receipt Date: 20120301
  Transmission Date: 20120608
  Serious: Yes (Disabling)
  Sender: FDA-Public Use
  Company Number: CA-JNJFOC-20120301325

PATIENT
  Sex: Female
  Weight: 76 kg

DRUGS (13)
  1. MULTI-VITAMINS [Concomitant]
     Route: 065
  2. PRADAXA [Concomitant]
     Route: 065
  3. FLORINEF [Concomitant]
     Route: 065
  4. REMICADE [Suspect]
     Indication: CROHN'S DISEASE
     Route: 042
  5. POTASSIUM CHLORIDE [Concomitant]
     Route: 065
  6. CRESTOR [Concomitant]
     Route: 065
  7. VITAMIN D [Concomitant]
     Route: 065
  8. LOVAZA [Concomitant]
     Route: 065
  9. CALCIUM [Concomitant]
     Route: 065
  10. IRON [Concomitant]
     Route: 065
  11. LASIX [Concomitant]
     Route: 065
  12. REMICADE [Suspect]
     Indication: COLITIS
     Route: 042
  13. PREVACID [Concomitant]
     Route: 065

REACTIONS (2)
  - FALL [None]
  - HUMERUS FRACTURE [None]
